FAERS Safety Report 13674046 (Version 1)
Quarter: 2017Q2

REPORT INFORMATION
  Report Type: Spontaneous
  Country: US (occurrence: US)
  Receive Date: 20170620
  Receipt Date: 20170620
  Transmission Date: 20170830
  Serious: Yes (Death)
  Sender: FDA-Public Use
  Company Number: None

PATIENT
  Age: 3 Year
  Sex: Male

DRUGS (9)
  1. AZITHROMYCIN ANHYDROUS. [Concomitant]
     Active Substance: AZITHROMYCIN ANHYDROUS
  2. FLUTICASON PROPIONATE [Concomitant]
     Active Substance: FLUTICASONE PROPIONATE
  3. RANTIDINE HCL [Concomitant]
  4. HYDROCORTISONE. [Concomitant]
     Active Substance: HYDROCORTISONE
  5. RAPAMUNE [Suspect]
     Active Substance: SIROLIMUS
     Indication: LYMPHANGIOMA
     Route: 048
  6. BACTRIM [Concomitant]
     Active Substance: SULFAMETHOXAZOLE\TRIMETHOPRIM
  7. LASIX [Concomitant]
     Active Substance: FUROSEMIDE
  8. PROAIR HFA [Concomitant]
     Active Substance: ALBUTEROL SULFATE
  9. ALBUTEROL SULFATE. [Concomitant]
     Active Substance: ALBUTEROL SULFATE

REACTIONS (1)
  - Death [None]
